FAERS Safety Report 15264866 (Version 2)
Quarter: 2018Q3

REPORT INFORMATION
  Report Type: Spontaneous
  Country: US (occurrence: US)
  Receive Date: 20180810
  Receipt Date: 20180910
  Transmission Date: 20181010
  Serious: Yes (Hospitalization, Other)
  Sender: FDA-Public Use
  Company Number: US-AMGEN-USASP2018106722

PATIENT
  Age: 71 Year
  Sex: Male

DRUGS (4)
  1. HUMIRA [Concomitant]
     Active Substance: ADALIMUMAB
     Dosage: UNK
  2. ENBREL [Suspect]
     Active Substance: ETANERCEPT
     Indication: RHEUMATOID ARTHRITIS
     Dosage: 50 MG, QWK
     Route: 065
     Dates: end: 201807
  3. ENBREL [Suspect]
     Active Substance: ETANERCEPT
     Dosage: 50 MG, QWK
     Route: 065
     Dates: start: 20180731
  4. KEFLEX [Concomitant]
     Active Substance: CEPHALEXIN
     Dosage: UNK (TWICE A DAY FOR 7 DAYS)
     Dates: start: 2018

REACTIONS (8)
  - Bone cyst [Recovered/Resolved]
  - Body temperature abnormal [Unknown]
  - Skin swelling [Unknown]
  - Arthropathy [Unknown]
  - Nervous system disorder [Unknown]
  - Arthritis [Unknown]
  - Erythema [Unknown]
  - Skin warm [Unknown]

NARRATIVE: CASE EVENT DATE: 201807
